FAERS Safety Report 21732764 (Version 1)
Quarter: 2022Q4

REPORT INFORMATION
  Report Type: Spontaneous
  Country: FR (occurrence: FR)
  Receive Date: 20221215
  Receipt Date: 20221215
  Transmission Date: 20230113
  Serious: Yes (Death, Other)
  Sender: FDA-Public Use
  Company Number: FR-AMGEN-FRASP2022215181

PATIENT

DRUGS (10)
  1. BEVACIZUMAB [Suspect]
     Active Substance: BEVACIZUMAB
     Indication: Glioblastoma multiforme
     Dosage: 10 MILLIGRAM/KG
     Route: 065
  2. TEMOZOLOMIDE [Suspect]
     Active Substance: TEMOZOLOMIDE
     Indication: Glioblastoma multiforme
     Dosage: 150 MILLIGRAM/M^2
     Route: 048
  3. TEMOZOLOMIDE [Suspect]
     Active Substance: TEMOZOLOMIDE
     Dosage: 200 MILLIGRAM/M^2
     Route: 048
  4. FOTEMUSTINE [Suspect]
     Active Substance: FOTEMUSTINE
     Indication: Glioblastoma multiforme
     Dosage: 80 MILLIGRAM/M^2
     Route: 040
  5. FOTEMUSTINE [Suspect]
     Active Substance: FOTEMUSTINE
     Dosage: 80 MILLIGRAM/M^2
     Route: 040
  6. IRINOTECAN [Suspect]
     Active Substance: IRINOTECAN
     Indication: Glioblastoma multiforme
     Dosage: 125 MILLIGRAM/M^2
     Route: 040
  7. IRINOTECAN [Suspect]
     Active Substance: IRINOTECAN
     Dosage: 125 MILLIGRAM/M^2
     Route: 040
  8. LOMUSTINE [Suspect]
     Active Substance: LOMUSTINE
     Indication: Glioblastoma multiforme
     Dosage: 90 MILLIGRAM/M^2
     Route: 048
  9. LOMUSTINE [Suspect]
     Active Substance: LOMUSTINE
     Dosage: 110 MILLIGRAM/M^2
     Route: 048
  10. PREDNISONE [Concomitant]
     Active Substance: PREDNISONE
     Indication: Glioblastoma multiforme
     Route: 065

REACTIONS (19)
  - Death [Fatal]
  - Dermo-hypodermitis [Fatal]
  - Muscle haemorrhage [Fatal]
  - Subarachnoid haemorrhage [Fatal]
  - Glioblastoma multiforme [Unknown]
  - Adverse event [Unknown]
  - Embolism [Unknown]
  - Gastrointestinal perforation [Fatal]
  - Thrombocytopenia [Unknown]
  - Gastrointestinal fistula [Unknown]
  - Haemorrhage [Unknown]
  - Neutropenia [Unknown]
  - Cell death [Unknown]
  - Therapy partial responder [Unknown]
  - Anaemia [Unknown]
  - Vomiting [Unknown]
  - Diarrhoea [Unknown]
  - Proteinuria [Unknown]
  - Hypertension [Unknown]
